FAERS Safety Report 7438425-2 (Version None)
Quarter: 2011Q2

REPORT INFORMATION
  Report Type: 
  Country: None (occurrence: None)
  Receive Date: 20110426
  Receipt Date: 20110414
  Transmission Date: 20111010
  Serious: Yes (Hospitalization, Other)
  Sender: FDA-Public Use
  Company Number: US-SANOFI-AVENTIS-2011SA023206

PATIENT
  Age: 66 Year
  Sex: Male

DRUGS (2)
  1. OPTICLICK [Suspect]
     Dates: start: 20100101
  2. LANTUS [Suspect]
     Indication: TYPE 2 DIABETES MELLITUS
     Dosage: DOSE:80 UNIT(S)
     Route: 058
     Dates: start: 20020101

REACTIONS (4)
  - BLINDNESS UNILATERAL [None]
  - CORONARY ARTERY OCCLUSION [None]
  - MYASTHENIA GRAVIS [None]
  - MIGRAINE [None]
